FAERS Safety Report 6279831-1 (Version None)
Quarter: 2009Q3

REPORT INFORMATION
  Report Type: 
  Country: None (occurrence: None)
  Receive Date: 20090723
  Receipt Date: 20090713
  Transmission Date: 20100115
  Serious: Yes (Other)
  Sender: FDA-Public Use
  Company Number: PHEH2009US07522

PATIENT

DRUGS (1)
  1. RECLAST [Suspect]

REACTIONS (1)
  - BONE NEOPLASM MALIGNANT [None]
